FAERS Safety Report 5861252-4 (Version None)
Quarter: 2008Q3

REPORT INFORMATION
  Report Type: 
  Country: None (occurrence: None)
  Receive Date: 20080827
  Receipt Date: 20080327
  Transmission Date: 20090109
  Serious: No
  Sender: FDA-Public Use
  Company Number: US-ABBOTT-08P-163-0444254-00

PATIENT
  Sex: Female
  Weight: 130 kg

DRUGS (4)
  1. COATED PDS [Suspect]
     Indication: LOW DENSITY LIPOPROTEIN DECREASED
     Route: 048
     Dates: start: 20080229, end: 20080313
  2. LISINOPRIL [Concomitant]
     Indication: HYPERTENSION
     Route: 048
  3. METFORMIN HCL [Concomitant]
     Indication: TYPE 2 DIABETES MELLITUS
     Route: 048
  4. JUNAVIA [Concomitant]
     Indication: PROPHYLAXIS
     Route: 048

REACTIONS (2)
  - BURNING SENSATION [None]
  - FEELING HOT [None]
